FAERS Safety Report 20143507 (Version 2)
Quarter: 2021Q4

REPORT INFORMATION
  Report Type: Other
  Country: US (occurrence: None)
  Receive Date: 20211203
  Receipt Date: 20211221
  Transmission Date: 20220303
  Serious: Yes (Other)
  Sender: FDA-Public Use
  Company Number: US-ROCHE-2964262

PATIENT
  Sex: Female
  Weight: 49.940 kg

DRUGS (10)
  1. ACTEMRA [Suspect]
     Active Substance: TOCILIZUMAB
     Indication: Rheumatoid arthritis
     Dosage: INJECT 162MG SUBCUTANEOUSLY EVERY WEEK
     Route: 058
  2. ACTEMRA [Suspect]
     Active Substance: TOCILIZUMAB
  3. ACTEMRA [Suspect]
     Active Substance: TOCILIZUMAB
     Indication: Rheumatoid arthritis
  4. ACTEMRA [Suspect]
     Active Substance: TOCILIZUMAB
  5. RANITIDINE [Concomitant]
     Active Substance: RANITIDINE
     Dosage: 1 TABLET PO QD
     Route: 048
  6. TYLENOL [Concomitant]
     Active Substance: ACETAMINOPHEN
     Dosage: PO PRN
     Route: 048
  7. ESTRATAB [Concomitant]
     Active Substance: ESTROGENS, ESTERIFIED
     Route: 048
  8. LEVOCETRIZINE HYDROCHLORIDE [Concomitant]
     Dosage: 1 TABLET PO QHS
     Route: 048
  9. ALLEGRA [Concomitant]
     Active Substance: FEXOFENADINE HYDROCHLORIDE
     Dosage: PO PRN
     Route: 048
  10. TUMS [Concomitant]
     Active Substance: CALCIUM CARBONATE
     Dosage: (1250 MG) 1 TABLET PO QD
     Route: 048

REACTIONS (1)
  - Blindness unilateral [Unknown]
